FAERS Safety Report 8992721 (Version 1)
Quarter: 2013Q1

REPORT INFORMATION
  Report Type: Report from Study
  Country: CA (occurrence: CA)
  Receive Date: 20130101
  Receipt Date: 20130101
  Transmission Date: 20140127
  Serious: Yes (Hospitalization, Other)
  Sender: FDA-Public Use
  Company Number: CA-ROCHE-1152665

PATIENT
  Age: 63 Year
  Sex: Female
  Weight: 106.69 kg

DRUGS (8)
  1. TOCILIZUMAB [Suspect]
     Indication: RHEUMATOID ARTHRITIS
     Route: 042
     Dates: start: 20110704, end: 20120925
  2. TOCILIZUMAB [Suspect]
     Route: 042
     Dates: start: 2006
  3. CLIMARA [Concomitant]
  4. MELOXICAM [Concomitant]
     Route: 048
  5. ATACAND PLUS [Concomitant]
     Dosage: ONE AND HALF TABLET
     Route: 048
  6. PREDNISONE [Concomitant]
  7. RANITIDINE [Concomitant]
  8. ZANTAC [Concomitant]
     Route: 048

REACTIONS (2)
  - Diverticulitis [Recovered/Resolved]
  - Spinal osteoarthritis [Not Recovered/Not Resolved]
